FAERS Safety Report 13960910 (Version 8)
Quarter: 2024Q4

REPORT INFORMATION
  Report Type: Spontaneous
  Country: FR (occurrence: FR)
  Receive Date: 20170912
  Receipt Date: 20241230
  Transmission Date: 20250114
  Serious: Yes (Hospitalization, Other)
  Sender: AMGEN
  Company Number: FR-AMGEN-FRASP2017134702

PATIENT
  Age: 61 Year
  Sex: Male
  Weight: 93 kg

DRUGS (9)
  1. XGEVA [Suspect]
     Active Substance: DENOSUMAB
     Indication: Prostate cancer metastatic
     Dosage: 120 MG, QMO
     Route: 058
     Dates: start: 201309
  2. GONADORELIN [Suspect]
     Active Substance: GONADORELIN
     Indication: Prostate cancer metastatic
     Dosage: 11.25 MG, Q3MO
     Route: 030
     Dates: start: 201209
  3. XOFIGO [Suspect]
     Active Substance: RADIUM RA-223 DICHLORIDE
     Indication: Prostate cancer metastatic
     Dosage: 100 KBQ/ML, CYCLICAL
     Route: 042
     Dates: start: 201612, end: 20170502
  4. XOFIGO [Suspect]
     Active Substance: RADIUM RA-223 DICHLORIDE
     Dosage: 1 DF, CYCLICAL
     Route: 042
     Dates: start: 201612, end: 20170502
  5. DEXAMETHASONE [Suspect]
     Active Substance: DEXAMETHASONE
     Indication: Prostate cancer metastatic
     Dosage: 0.5 MG, QD
     Route: 048
     Dates: start: 201502
  6. XTANDI [Suspect]
     Active Substance: ENZALUTAMIDE
     Indication: Prostate cancer metastatic
     Dosage: 160 MG, 4 IN 1 DAY
     Route: 048
     Dates: start: 201601
  7. XTANDI [Suspect]
     Active Substance: ENZALUTAMIDE
     Dosage: 640 MILLIGRAM, QID 4 IN 1 DAY
     Route: 048
     Dates: start: 201601
  8. CABAZITAXEL [Suspect]
     Active Substance: CABAZITAXEL
     Indication: Prostate cancer metastatic
     Dosage: UNK
     Route: 065
  9. ZYTIGA [Concomitant]
     Active Substance: ABIRATERONE ACETATE
     Dosage: UNK

REACTIONS (12)
  - Vision blurred [Not Recovered/Not Resolved]
  - Hyphaema [Not Recovered/Not Resolved]
  - Intraocular pressure increased [Not Recovered/Not Resolved]
  - Iridocyclitis [Recovered/Resolved]
  - Malignant neoplasm progression [Unknown]
  - Abdominal lymphadenopathy [Unknown]
  - Vision blurred [Not Recovered/Not Resolved]
  - Cyclitis [Recovered/Resolved]
  - Lymphadenopathy [Unknown]
  - Glaucoma [Unknown]
  - Central nervous system lesion [Unknown]
  - Prostatic specific antigen increased [Unknown]

NARRATIVE: CASE EVENT DATE: 20160101
